FAERS Safety Report 8332126-4 (Version None)
Quarter: 2012Q2

REPORT INFORMATION
  Report Type: 
  Country: None (occurrence: None)
  Receive Date: 20120502
  Receipt Date: 20120419
  Transmission Date: 20120825
  Serious: Yes (Hospitalization, Other)
  Sender: FDA-Public Use
  Company Number: US-MYLANLABS-2008AL011582

PATIENT
  Age: 61 Year
  Sex: Female
  Weight: 81.5 kg

DRUGS (24)
  1. DIOVAN [Concomitant]
  2. LIDOCAINE [Concomitant]
  3. TOPROL-XL [Concomitant]
     Indication: HYPERTENSION
  4. ASPIRIN [Concomitant]
  5. MULTI-VITAMINS [Concomitant]
  6. ESTER C /00008001/ [Concomitant]
  7. NITROGLYCERIN [Concomitant]
     Indication: CHEST PAIN
     Route: 060
  8. FISH OIL [Concomitant]
  9. BENADRYL [Concomitant]
     Route: 042
  10. BISMUTH SUBSALICYLATE [Concomitant]
  11. CALAN [Concomitant]
  12. NEXIUM [Concomitant]
  13. EPINEPHRINE [Concomitant]
  14. DIGOXIN [Suspect]
     Route: 048
     Dates: start: 20060124, end: 20090303
  15. VERAPAMIL HCL EXTENDED RELEASE [Concomitant]
  16. PRAVACHOL [Concomitant]
  17. ZYRTEC [Concomitant]
  18. NIASPAN [Concomitant]
  19. HEPARIN [Concomitant]
     Route: 042
  20. PLAVIX [Concomitant]
  21. GLUCOSAMIN CHONDROITIN /05199501/ [Concomitant]
  22. ADENOSINE [Concomitant]
  23. DILAUDID [Concomitant]
     Route: 042
  24. VERAPAMIL [Concomitant]

REACTIONS (74)
  - DYSPNOEA [None]
  - UPPER-AIRWAY COUGH SYNDROME [None]
  - FACIAL PAIN [None]
  - ANAEMIA [None]
  - HYPERTENSION [None]
  - CARDIAC VALVE DISEASE [None]
  - BENIGN COLONIC NEOPLASM [None]
  - CARDIAC MURMUR [None]
  - HEART RATE INCREASED [None]
  - OBSTRUCTIVE AIRWAYS DISORDER [None]
  - ARTERIOSPASM CORONARY [None]
  - SINUSITIS [None]
  - GASTRITIS [None]
  - CORONARY ARTERY DISEASE [None]
  - DIVERTICULUM [None]
  - GASTRIC ULCER [None]
  - GASTROOESOPHAGEAL REFLUX DISEASE [None]
  - HAEMORRHAGIC ANAEMIA [None]
  - INJURY [None]
  - NAUSEA [None]
  - BRADYCARDIA [None]
  - INFLUENZA [None]
  - POLYP [None]
  - BLOOD PRESSURE INCREASED [None]
  - HYPOSMIA [None]
  - LACRIMATION INCREASED [None]
  - MYOCARDIAL ISCHAEMIA [None]
  - PERICARDIAL EFFUSION [None]
  - CHRONIC SINUSITIS [None]
  - GASTRODUODENITIS [None]
  - COUGH [None]
  - ARRHYTHMIA [None]
  - ARTERIOSCLEROSIS CORONARY ARTERY [None]
  - BLOOD GLUCOSE DECREASED [None]
  - HAEMORRHOIDS [None]
  - RECTAL HAEMORRHAGE [None]
  - SUPRAVENTRICULAR TACHYCARDIA [None]
  - DIZZINESS [None]
  - CHEST PAIN [None]
  - NASAL CONGESTION [None]
  - PALLOR [None]
  - EAR PAIN [None]
  - GASTROINTESTINAL HAEMORRHAGE [None]
  - ACUTE CORONARY SYNDROME [None]
  - PHYSICAL EXAMINATION ABNORMAL [None]
  - VENTRICULAR EXTRASYSTOLES [None]
  - HEART RATE IRREGULAR [None]
  - HEARING IMPAIRED [None]
  - ASTHMA [None]
  - DRUG PRESCRIBING ERROR [None]
  - ECHOCARDIOGRAM ABNORMAL [None]
  - HEART RATE DECREASED [None]
  - HYPERHIDROSIS [None]
  - HYSTERECTOMY [None]
  - OESOPHAGITIS [None]
  - ASTHENIA [None]
  - ELECTROCARDIOGRAM ABNORMAL [None]
  - LABORATORY TEST ABNORMAL [None]
  - AZOTAEMIA [None]
  - COMPUTERISED TOMOGRAM ABNORMAL [None]
  - ESSENTIAL HYPERTENSION [None]
  - FAECES DISCOLOURED [None]
  - HYPERLIPIDAEMIA [None]
  - NASAL SEPTUM DEVIATION [None]
  - NODAL RHYTHM [None]
  - UPPER GASTROINTESTINAL HAEMORRHAGE [None]
  - PRESYNCOPE [None]
  - CHILLS [None]
  - ABDOMINAL TENDERNESS [None]
  - BIOPSY STOMACH ABNORMAL [None]
  - CATHETERISATION CARDIAC ABNORMAL [None]
  - LEFT VENTRICULAR HYPERTROPHY [None]
  - PRODUCTIVE COUGH [None]
  - SINUS BRADYCARDIA [None]
